FAERS Safety Report 7244561-6 (Version None)
Quarter: 2011Q1

REPORT INFORMATION
  Report Type: 
  Country: None (occurrence: None)
  Receive Date: 20110125
  Receipt Date: 20110118
  Transmission Date: 20110831
  Serious: Yes (Other)
  Sender: FDA-Public Use
  Company Number: US-US-EMD SERONO, INC.-7036955

PATIENT
  Sex: Female

DRUGS (1)
  1. SEROPHENE [Suspect]
     Indication: INFERTILITY
     Dates: end: 20090101

REACTIONS (1)
  - ABORTION SPONTANEOUS [None]
